FAERS Safety Report 23554116 (Version 4)
Quarter: 2024Q3

REPORT INFORMATION
  Report Type: Spontaneous
  Country: US (occurrence: US)
  Receive Date: 20240222
  Receipt Date: 20240719
  Transmission Date: 20241017
  Serious: Yes (Hospitalization, Other)
  Sender: JOHNSON AND JOHNSON
  Company Number: US-JNJFOC-20240251615

PATIENT
  Age: 86 Year
  Sex: Male
  Weight: 49.9 kg

DRUGS (34)
  1. OPSUMIT [Suspect]
     Active Substance: MACITENTAN
     Indication: Product used for unknown indication
     Route: 048
     Dates: end: 2024
  2. TREPROSTINIL [Suspect]
     Active Substance: TREPROSTINIL
     Indication: Pulmonary arterial hypertension
     Dosage: TREPROSTINIL INHALATION POWDER?112 UG, QID [64 UG+48 UG], INHALATION
     Route: 055
     Dates: start: 202401
  3. TREPROSTINIL [Suspect]
     Active Substance: TREPROSTINIL
     Route: 055
  4. TREPROSTINIL [Suspect]
     Active Substance: TREPROSTINIL
     Route: 055
     Dates: start: 20240109
  5. TREPROSTINIL [Suspect]
     Active Substance: TREPROSTINIL
     Route: 055
  6. TYVASO DPI [Suspect]
     Active Substance: TREPROSTINIL
     Indication: Pulmonary arterial hypertension
     Dosage: TREPROSTINIL INHALATION POWDER
     Route: 065
  7. TYVASO DPI [Suspect]
     Active Substance: TREPROSTINIL
     Route: 055
     Dates: start: 20240109
  8. TYVASO DPI [Suspect]
     Active Substance: TREPROSTINIL
     Route: 055
     Dates: start: 20230626
  9. TYVASO DPI [Suspect]
     Active Substance: TREPROSTINIL
     Dosage: 112 UG (64 UG +48 UG)
     Route: 055
  10. JARDIANCE [Concomitant]
     Active Substance: EMPAGLIFLOZIN
  11. OMEPRAZOLE MAGNESIUM [Concomitant]
     Active Substance: OMEPRAZOLE MAGNESIUM
  12. FINASTERIDE [Concomitant]
     Active Substance: FINASTERIDE
  13. ALBUTEROL SULFATE [Concomitant]
     Active Substance: ALBUTEROL SULFATE
  14. CIALIS [Concomitant]
     Active Substance: TADALAFIL
  15. LISINOPRIL [Concomitant]
     Active Substance: LISINOPRIL
  16. NEPAFENAC;PREDNISOLONE [Concomitant]
  17. MYCOPHENOLATE MOFETIL [Concomitant]
     Active Substance: MYCOPHENOLATE MOFETIL
  18. VITAMIN D3 [Concomitant]
     Active Substance: CHOLECALCIFEROL
  19. PROBIOTIC ACIDOPHILUS [LACTOBACILLUS ACIDOPHILUS] [Concomitant]
  20. ASCORBIC ACID [Concomitant]
     Active Substance: ASCORBIC ACID
  21. CYANOCOBALAMIN [Concomitant]
     Active Substance: CYANOCOBALAMIN
  22. ERGOCALCIFEROL [Concomitant]
     Active Substance: ERGOCALCIFEROL
  23. NICOTINAMIDE [Concomitant]
     Active Substance: NIACINAMIDE
  24. PYRIDOXINE HYDROCHLORIDE [Concomitant]
     Active Substance: PYRIDOXINE HYDROCHLORIDE
  25. RETINOL [Concomitant]
     Active Substance: RETINOL
  26. RIBOFLAVIN [Concomitant]
     Active Substance: RIBOFLAVIN
  27. THIAMINE MONONITRATE [Concomitant]
     Active Substance: THIAMINE MONONITRATE
  28. OXYGEN [Concomitant]
     Active Substance: OXYGEN
  29. CALCIUM CARBONATE [Concomitant]
     Active Substance: CALCIUM CARBONATE
  30. FUROSEMIDE [Concomitant]
     Active Substance: FUROSEMIDE
  31. POTASSIUM CHLORIDE [Concomitant]
     Active Substance: POTASSIUM CHLORIDE
  32. NIFEDIPINE [Concomitant]
     Active Substance: NIFEDIPINE
  33. SIMVASTATIN [Concomitant]
     Active Substance: SIMVASTATIN
  34. ONE A DAY [ASCORBIC ACID;CYANOCOBALAMIN;ERGOCALCIFEROL;NICOTINAMIDE;PY [Concomitant]

REACTIONS (4)
  - Hypotension [Unknown]
  - Ophthalmic herpes zoster [Unknown]
  - Left ventricular dysfunction [Unknown]
  - Memory impairment [Unknown]

NARRATIVE: CASE EVENT DATE: 20240120
